FAERS Safety Report 13164949 (Version 1)
Quarter: 2017Q1

REPORT INFORMATION
  Report Type: Report from Study
  Country: AE (occurrence: AE)
  Receive Date: 20170130
  Receipt Date: 20170130
  Transmission Date: 20170428
  Serious: Yes (Hospitalization, Other)
  Sender: FDA-Public Use
  Company Number: AE-GILEAD-2017-0255431

PATIENT
  Age: 56 Year
  Sex: Female

DRUGS (13)
  1. MYCOPHENOLATE MOFETIL. [Concomitant]
     Active Substance: MYCOPHENOLATE MOFETIL
  2. ESOMEPRAZOLE [Concomitant]
     Active Substance: ESOMEPRAZOLE
  3. CALCIUM CARBONATE. [Concomitant]
     Active Substance: CALCIUM CARBONATE
  4. HUMALOG [Concomitant]
     Active Substance: INSULIN LISPRO
  5. FUROSEMIDE. [Concomitant]
     Active Substance: FUROSEMIDE
  6. EVEROLIMUS [Concomitant]
     Active Substance: EVEROLIMUS
  7. LANTUS [Concomitant]
     Active Substance: INSULIN GLARGINE
  8. SOFOSBUVIR [Suspect]
     Active Substance: SOFOSBUVIR
     Indication: PRODUCT USED FOR UNKNOWN INDICATION
     Dosage: 400 MG, QD
     Route: 065
  9. ROSUVASTATIN. [Concomitant]
     Active Substance: ROSUVASTATIN
  10. SIMEPREVIR [Suspect]
     Active Substance: SIMEPREVIR
     Indication: PRODUCT USED FOR UNKNOWN INDICATION
     Dosage: 150 MG, QD
     Route: 065
  11. ERGOCALCIFEROL. [Concomitant]
     Active Substance: ERGOCALCIFEROL
  12. ASPIRIN                            /00002701/ [Concomitant]
     Active Substance: ASPIRIN
  13. AMLODIPINE W/VALSARTAN [Concomitant]
     Active Substance: AMLODIPINE\VALSARTAN

REACTIONS (4)
  - Rhabdomyolysis [Recovered/Resolved]
  - Skin hyperpigmentation [Recovered/Resolved]
  - Drug interaction [Recovered/Resolved]
  - Acute kidney injury [Recovered/Resolved]

NARRATIVE: CASE EVENT DATE: 20141101
